FAERS Safety Report 8456505-X (Version None)
Quarter: 2012Q2

REPORT INFORMATION
  Report Type: 
  Country: None (occurrence: None)
  Receive Date: 20120621
  Receipt Date: 20120613
  Transmission Date: 20120825
  Serious: Yes (Other)
  Sender: FDA-Public Use
  Company Number: CA-ROCHE-1079630

PATIENT
  Sex: Female

DRUGS (3)
  1. ALBUTEROL [Concomitant]
     Dates: start: 20110517
  2. ADVAIR DISKUS 100/50 [Concomitant]
  3. XOLAIR [Suspect]
     Indication: ASTHMA
     Route: 058
     Dates: start: 20110517

REACTIONS (5)
  - RALES [None]
  - MYALGIA [None]
  - COUGH [None]
  - HYPERTENSION [None]
  - FOOT FRACTURE [None]
